FAERS Safety Report 21731244 (Version 2)
Quarter: 2023Q2

REPORT INFORMATION
  Report Type: Spontaneous
  Country: IT (occurrence: IT)
  Receive Date: 20221215
  Receipt Date: 20230411
  Transmission Date: 20230721
  Serious: Yes (Other)
  Sender: FDA-Public Use
  Company Number: IT-AMGEN-ITASP2022213028

PATIENT
  Age: 3 Year
  Sex: Male

DRUGS (1)
  1. BLINCYTO [Suspect]
     Active Substance: BLINATUMOMAB
     Indication: Acute lymphocytic leukaemia
     Dosage: 15 MICROGRAM PER SQUARE METRE, QD FOR 28 DAYS
     Route: 065

REACTIONS (2)
  - Central nervous system leukaemia [Recovered/Resolved]
  - Minimal residual disease [Recovered/Resolved]
